FAERS Safety Report 6935865-2 (Version None)
Quarter: 2010Q3

REPORT INFORMATION
  Report Type: 
  Country: None (occurrence: None)
  Receive Date: 20100823
  Receipt Date: 20100801
  Transmission Date: 20110219
  Serious: No
  Sender: FDA-Public Use
  Company Number: US-ROXANE LABORATORIES, INC.-2010-RO-01113RO

PATIENT
  Sex: Male

DRUGS (3)
  1. LEUCOVORIN CALCIUM [Suspect]
     Indication: COLON CANCER STAGE III
     Dates: start: 20100601, end: 20100601
  2. ELOXATIN [Suspect]
     Indication: COLON CANCER STAGE III
     Route: 042
     Dates: start: 20100601, end: 20100601
  3. FLUOROURACIL [Suspect]
     Indication: COLON CANCER STAGE III
     Dates: start: 20100601, end: 20100601

REACTIONS (5)
  - ABDOMINAL PAIN UPPER [None]
  - DECREASED APPETITE [None]
  - DIARRHOEA [None]
  - FATIGUE [None]
  - NAUSEA [None]
